FAERS Safety Report 8240681-8 (Version None)
Quarter: 2012Q1

REPORT INFORMATION
  Report Type: 
  Country: None (occurrence: None)
  Receive Date: 20120328
  Receipt Date: 20120316
  Transmission Date: 20120608
  Serious: Yes (Other)
  Sender: FDA-Public Use
  Company Number: ZA-SANOFI-AVENTIS-2012SA015399

PATIENT
  Age: 68 Year
  Sex: Female
  Weight: 73 kg

DRUGS (5)
  1. SOLPHYLLEX [Concomitant]
     Dates: start: 20111203
  2. OFORTA [Suspect]
     Dosage: 70 MG (40 MG/M2), QDX5 (ONE COURSE)
     Route: 048
     Dates: start: 20111027, end: 20111031
  3. AMILORIDE HYDROCHLORIDE [Concomitant]
  4. NEUPOGEN [Concomitant]
     Dates: start: 20111202, end: 20111206
  5. INVANZ [Concomitant]
     Dates: start: 20111208, end: 20111212

REACTIONS (3)
  - BLINDNESS [None]
  - CONFUSIONAL STATE [None]
  - CEREBRAL INFARCTION [None]
